FAERS Safety Report 17307027 (Version 1)
Quarter: 2020Q1

REPORT INFORMATION
  Report Type: Spontaneous
  Country: US (occurrence: US)
  Receive Date: 20200123
  Receipt Date: 20200123
  Transmission Date: 20200409
  Serious: No
  Sender: FDA-Public Use
  Company Number: US-EAGLE PHARMACEUTICALS, INC.-US-2019EAG000073

PATIENT
  Age: 72 Year
  Sex: Male

DRUGS (3)
  1. BENDAMUSTINE HYDROCHLORIDE. [Suspect]
     Active Substance: BENDAMUSTINE HYDROCHLORIDE
     Indication: NON-HODGKIN^S LYMPHOMA
     Dosage: 2 DAYS PER MONTH
  2. RITUXIMAB. [Concomitant]
     Active Substance: RITUXIMAB
     Indication: NON-HODGKIN^S LYMPHOMA
     Dosage: 2 DAYS PER MONTH FOR 4 MONTHS
  3. RITUXIMAB. [Concomitant]
     Active Substance: RITUXIMAB
     Dosage: THEN EVERY 2 MONTHS

REACTIONS (3)
  - Infusion site urticaria [Not Recovered/Not Resolved]
  - Infusion site extravasation [Recovering/Resolving]
  - Infusion site discomfort [Not Recovered/Not Resolved]
